FAERS Safety Report 4851414-7 (Version None)
Quarter: 2005Q4

REPORT INFORMATION
  Report Type: 
  Country: None (occurrence: None)
  Receive Date: 20051212
  Receipt Date: 20051130
  Transmission Date: 20060501
  Serious: Yes (Hospitalization)
  Sender: FDA-Public Use
  Company Number: JP-BRISTOL-MYERS SQUIBB COMPANY-13201629

PATIENT
  Age: 80 Year
  Sex: Female

DRUGS (4)
  1. MAXIPIME [Suspect]
     Indication: PNEUMONIA
     Route: 041
     Dates: start: 20051123, end: 20051125
  2. OLMETEC [Concomitant]
     Route: 048
     Dates: end: 20051125
  3. PAXIL [Concomitant]
     Route: 048
     Dates: end: 20051125
  4. HALCION [Concomitant]
     Route: 048
     Dates: end: 20051125

REACTIONS (2)
  - DEPRESSED LEVEL OF CONSCIOUSNESS [None]
  - MYOCLONUS [None]
